FAERS Safety Report 14140627 (Version 1)
Quarter: 2017Q4

REPORT INFORMATION
  Report Type: Spontaneous
  Country: US (occurrence: US)
  Receive Date: 20171027
  Receipt Date: 20171027
  Transmission Date: 20180321
  Serious: Yes (Other)
  Sender: FDA-Public Use
  Company Number: None

PATIENT
  Age: 56 Year
  Sex: Male
  Weight: 103.5 kg

DRUGS (15)
  1. VITAMIN A [Concomitant]
     Active Substance: VITAMIN A
  2. COQ10 [Concomitant]
     Active Substance: UBIDECARENONE
  3. VITAMIN B6 [Concomitant]
     Active Substance: PYRIDOXINE HYDROCHLORIDE
  4. VITAMIN C [Concomitant]
     Active Substance: ASCORBIC ACID
  5. INOSITOL [Concomitant]
     Active Substance: INOSITOL
  6. ASPIRIN. [Concomitant]
     Active Substance: ASPIRIN
  7. BENADRYL [Concomitant]
     Active Substance: DIPHENHYDRAMINE HYDROCHLORIDE
  8. TESTOSTERONE GEL [Suspect]
     Active Substance: TESTOSTERONE
     Indication: HYPOGONADISM
     Dosage: QUANTITY:4 PUMP;?
     Route: 061
     Dates: start: 20170929, end: 20171010
  9. METOPROLOL TARTRATE. [Concomitant]
     Active Substance: METOPROLOL TARTRATE
  10. VALSARTAN. [Concomitant]
     Active Substance: VALSARTAN
  11. VITAMIN D3 [Concomitant]
     Active Substance: CHOLECALCIFEROL
  12. VITAMIN E [Concomitant]
     Active Substance: .ALPHA.-TOCOPHEROL
  13. CHOLINE [Concomitant]
     Active Substance: CHOLINE
  14. STRESS VITAMIN B [Concomitant]
  15. VITAMIN B12 [Concomitant]
     Active Substance: CYANOCOBALAMIN

REACTIONS (5)
  - Feeling hot [None]
  - Fungal infection [None]
  - Pruritus [None]
  - Rash [None]
  - Erythema [None]

NARRATIVE: CASE EVENT DATE: 20171006
